FAERS Safety Report 24044512 (Version 2)
Quarter: 2024Q4

REPORT INFORMATION
  Report Type: Report from Study
  Country: US (occurrence: US)
  Receive Date: 20240703
  Receipt Date: 20241010
  Transmission Date: 20250114
  Serious: No
  Sender: ALEXION PHARMACEUTICALS
  Company Number: US-AstraZeneca-CH-00654803A

PATIENT

DRUGS (4)
  1. STRENSIQ [Suspect]
     Active Substance: ASFOTASE ALFA
     Indication: Hypophosphatasia
     Dosage: 91 MILLIGRAM, SIX TIMES/WEEK
  2. STRENSIQ [Suspect]
     Active Substance: ASFOTASE ALFA
     Dosage: 91 MILLIGRAM, SIX TIMES/WEEK
  3. STRENSIQ [Suspect]
     Active Substance: ASFOTASE ALFA
     Dosage: 91 MILLIGRAM, SIX TIMES/WEEK
  4. STRENSIQ [Suspect]
     Active Substance: ASFOTASE ALFA
     Dosage: 91 MILLIGRAM, SIX TIMES/WEEK

REACTIONS (5)
  - Illness [Unknown]
  - Feeling abnormal [Unknown]
  - Influenza like illness [Unknown]
  - Malaise [Not Recovered/Not Resolved]
  - Anxiety [Unknown]
